FAERS Safety Report 8764782 (Version 1)
Quarter: 2012Q4

REPORT INFORMATION
  Report Type: 
  Country: US (occurrence: US)
  Receive Date: 20120831
  Receipt Date: 20120831
  Transmission Date: 20130627
  Serious: Yes (Other)
  Sender: FDA-Public Use
  Company Number: US-ROCHE-1092058

PATIENT
  Age: 73 Year
  Sex: Female
  Weight: 33.6 kg

DRUGS (13)
  1. ACTEMRA [Suspect]
     Indication: RHEUMATOID ARTHRITIS
     Route: 042
     Dates: start: 20111228
  2. ACTEMRA [Suspect]
     Route: 042
     Dates: start: 20120418
  3. ACTEMRA [Suspect]
     Route: 042
     Dates: start: 20120516
  4. ACTEMRA [Suspect]
     Route: 042
     Dates: start: 20120619
  5. ACTEMRA [Suspect]
     Route: 042
     Dates: start: 20120718
  6. METHOTREXATE [Suspect]
     Indication: RHEUMATOID ARTHRITIS
     Route: 048
     Dates: start: 1999
  7. VOLTAREN [Suspect]
     Indication: RHEUMATOID ARTHRITIS
     Route: 048
     Dates: start: 20050413
  8. FOLIC ACID [Concomitant]
     Indication: RHEUMATOID ARTHRITIS
     Route: 048
  9. RECLAST [Concomitant]
     Indication: OSTEOPOROSIS
     Route: 042
     Dates: start: 20090311, end: 20120502
  10. L-THYROXINE [Concomitant]
     Indication: HYPOTHYROIDISM
     Route: 048
  11. LOSARTAN [Concomitant]
     Indication: HYPERTENSION
     Route: 048
  12. CALCIUM [Concomitant]
     Route: 048
  13. VITAMIN D3 [Concomitant]
     Route: 048

REACTIONS (2)
  - Eosinophil count increased [Not Recovered/Not Resolved]
  - Pruritus [Not Recovered/Not Resolved]
